FAERS Safety Report 24952110 (Version 1)
Quarter: 2025Q1

REPORT INFORMATION
  Report Type: Spontaneous
  Country: GB (occurrence: GB)
  Receive Date: 20250210
  Receipt Date: 20250210
  Transmission Date: 20250409
  Serious: Yes (Other)
  Sender: ELI LILLY AND COMPANY
  Company Number: None

PATIENT
  Age: 33 Year
  Sex: Female
  Weight: 93 kg

DRUGS (2)
  1. MOUNJARO [Suspect]
     Active Substance: TIRZEPATIDE
     Indication: Weight control
     Dosage: 2.5 MG, WEEKLY (1/W)
     Route: 058
     Dates: start: 20250121
  2. LAMOTRIGINE [Concomitant]
     Active Substance: LAMOTRIGINE
     Indication: Epilepsy
     Dates: start: 20240201

REACTIONS (7)
  - Arthralgia [Not Recovered/Not Resolved]
  - Myalgia [Not Recovered/Not Resolved]
  - Renal pain [Recovered/Resolved with Sequelae]
  - Restless legs syndrome [Recovered/Resolved with Sequelae]
  - Hyperhidrosis [Not Recovered/Not Resolved]
  - Hypoaesthesia [Unknown]
  - Neck pain [Unknown]

NARRATIVE: CASE EVENT DATE: 20250121
